FAERS Safety Report 5084384-X (Version None)
Quarter: 2006Q3

REPORT INFORMATION
  Report Type: 
  Country: None (occurrence: None)
  Receive Date: 20060815
  Receipt Date: 20060804
  Transmission Date: 20061208
  Serious: No
  Sender: FDA-Public Use
  Company Number: TPA2006A01274

PATIENT
  Age: 57 Year
  Sex: Male
  Weight: 113.3993 kg

DRUGS (10)
  1. ACTOS [Suspect]
     Indication: DIABETES MELLITUS NON-INSULIN-DEPENDENT
     Dosage: 30 MG 1 IN 1 D, PER ORAL
     Route: 048
  2. ACTOS [Suspect]
  3. ACTOS [Suspect]
  4. ACTOS [Suspect]
  5. METFORMIN (METFORMIN) [Suspect]
     Indication: DIABETES MELLITUS NON-INSULIN-DEPENDENT
     Dosage: 1000 MG, 2 IN 1 D, PER ORAL
     Route: 048
  6. GLIPIZIDE [Suspect]
     Indication: DIABETES MELLITUS NON-INSULIN-DEPENDENT
     Dosage: 5 MG, 2 IN 1 D, PER ORAL
     Route: 048
  7. METOPROLOL (METOPROLOL) [Concomitant]
  8. HCTZ (HYDROCHLOROTHIAZIE) [Concomitant]
  9. CLONIDINE [Concomitant]
  10. LISINOPRIL [Concomitant]

REACTIONS (5)
  - BLOOD GLUCOSE INCREASED [None]
  - DEHYDRATION [None]
  - DRUG INEFFECTIVE [None]
  - HEADACHE [None]
  - SWELLING [None]
